FAERS Safety Report 5588583-X (Version None)
Quarter: 2007Q4

REPORT INFORMATION
  Report Type: 
  Country: None (occurrence: None)
  Receive Date: 20071212
  Receipt Date: 20071101
  Transmission Date: 20080405
  Serious: No
  Sender: FDA-Public Use
  Company Number: 2007RL000494

PATIENT
  Age: 75 Year
  Sex: Male

DRUGS (6)
  1. LOVAZA [Suspect]
     Indication: BLOOD CHOLESTEROL INCREASED
     Dosage: 4 GM;QD;PO
     Route: 048
     Dates: start: 20070101
  2. WARFARIN SODIUM [Concomitant]
  3. COREG CR [Concomitant]
  4. CRESTOR [Concomitant]
  5. FLONASE [Concomitant]
  6. SAW PALMETTO /00833501/ [Concomitant]

REACTIONS (2)
  - ABDOMINAL DISTENSION [None]
  - OFF LABEL USE [None]
